FAERS Safety Report 20995362 (Version 1)
Quarter: 2022Q2

REPORT INFORMATION
  Report Type: Spontaneous
  Country: US (occurrence: US)
  Receive Date: 20220622
  Receipt Date: 20220622
  Transmission Date: 20220721
  Serious: No
  Sender: FDA-Public Use
  Company Number: US-CTI BIOPHARMA-2022US02850

PATIENT

DRUGS (1)
  1. VONJO [Suspect]
     Active Substance: PACRITINIB
     Indication: Myelofibrosis
     Dosage: 200 MILLIGRAM, BID
     Dates: start: 20220518

REACTIONS (7)
  - Epistaxis [Unknown]
  - Malaise [Unknown]
  - Hypophagia [Unknown]
  - Weight decreased [Unknown]
  - Night sweats [Unknown]
  - Somnolence [Unknown]
  - Depression [Unknown]

NARRATIVE: CASE EVENT DATE: 20220523
